FAERS Safety Report 9797636 (Version 1)
Quarter: 2014Q1

REPORT INFORMATION
  Report Type: Spontaneous
  Country: US (occurrence: US)
  Receive Date: 20140106
  Receipt Date: 20140106
  Transmission Date: 20141002
  Serious: No
  Sender: FDA-Public Use
  Company Number: US-B.I. PHARMACEUTICALS,INC./RIDGEFIELD-2013-BI-43975BP

PATIENT
  Sex: Female

DRUGS (1)
  1. MICARDIS [Suspect]
     Dosage: 20 MG
     Route: 048
     Dates: start: 20131025

REACTIONS (1)
  - Choking [Recovered/Resolved]
